FAERS Safety Report 7846608-2 (Version None)
Quarter: 2011Q4

REPORT INFORMATION
  Report Type: 
  Country: None (occurrence: None)
  Receive Date: 20111025
  Receipt Date: 20111021
  Transmission Date: 20120403
  Serious: Yes (Death, Other)
  Sender: FDA-Public Use
  Company Number: SE-ASTRAZENECA-2011SE63610

PATIENT
  Age: 20 Year
  Sex: Male

DRUGS (8)
  1. NOREPINEPHRINE BITARTRATE [Suspect]
     Dosage: 1 MG/ML, DAILY
     Route: 042
     Dates: start: 20110601, end: 20110604
  2. FRAGMIN [Concomitant]
  3. VALPROIC ACID [Concomitant]
     Dosage: 200 MG/ML
     Route: 048
  4. NEXIUM [Concomitant]
  5. PRO-EPANUTIN [Concomitant]
     Dosage: 75 MG/ML
  6. ETHOSUXIMIDE [Concomitant]
     Dosage: 50 MG/ML
     Route: 048
  7. ZINACEF [Concomitant]
  8. PROPOFOL [Suspect]
     Dosage: DAILY
     Route: 042
     Dates: start: 20110531, end: 20110604

REACTIONS (4)
  - RENAL FAILURE ACUTE [None]
  - CIRCULATORY COLLAPSE [None]
  - ACIDOSIS [None]
  - RHABDOMYOLYSIS [None]
